FAERS Safety Report 9605751 (Version 1)
Quarter: 2013Q4

REPORT INFORMATION
  Report Type: Spontaneous
  Country: US (occurrence: US)
  Receive Date: 20131008
  Receipt Date: 20131008
  Transmission Date: 20140711
  Serious: Yes (Hospitalization)
  Sender: FDA-Public Use
  Company Number: US-ABBVIE-13P-163-1153310-00

PATIENT
  Sex: Female
  Weight: 63.56 kg

DRUGS (5)
  1. SYNTHROID [Suspect]
     Indication: THYROID DISORDER
     Dosage: 112 MCG AND 125 MCG: ALSO .3 MCG AND .6 MCG ON SUNDAYS
     Dates: start: 1963
  2. SYNTHROID [Suspect]
     Indication: THYROID DISORDER
     Dates: start: 1963
  3. CYTOMEL [Suspect]
     Indication: THYROID DISORDER
     Dates: start: 2006, end: 201109
  4. LEVOXYL [Suspect]
     Indication: PRODUCT USED FOR UNKNOWN INDICATION
  5. LEVOTHROID [Suspect]
     Indication: PRODUCT USED FOR UNKNOWN INDICATION

REACTIONS (9)
  - Cardiac disorder [Recovering/Resolving]
  - Cardiac disorder [Not Recovered/Not Resolved]
  - Toxicity to various agents [Recovered/Resolved]
  - Hypoaesthesia [Not Recovered/Not Resolved]
  - Dry mouth [Not Recovered/Not Resolved]
  - Onychomadesis [Recovered/Resolved]
  - Coeliac disease [Unknown]
  - Hepatic enzyme increased [Not Recovered/Not Resolved]
  - Hypersensitivity [Unknown]
